FAERS Safety Report 6142932-2 (Version None)
Quarter: 2009Q2

REPORT INFORMATION
  Report Type: 
  Country: None (occurrence: None)
  Receive Date: 20090403
  Receipt Date: 20090225
  Transmission Date: 20091009
  Serious: Yes (Other)
  Sender: FDA-Public Use
  Company Number: US-BAYER-200829328NA

PATIENT
  Age: 62 Year
  Sex: Male

DRUGS (16)
  1. MAGNEVIST [Suspect]
     Indication: ANGIOGRAM
     Dates: start: 20041202, end: 20041202
  2. OMNISCAN [Suspect]
     Indication: DRUG USE FOR UNKNOWN INDICATION
  3. OPTIMARK [Suspect]
     Indication: DRUG USE FOR UNKNOWN INDICATION
  4. MULTIHANCE [Suspect]
     Indication: DRUG USE FOR UNKNOWN INDICATION
  5. PROHANCE [Suspect]
     Indication: DRUG USE FOR UNKNOWN INDICATION
  6. AMIODARONE HCL [Concomitant]
     Indication: CARDIAC DISORDER
  7. HYDRALAZINE HCL [Concomitant]
     Indication: CARDIAC DISORDER
  8. COREG [Concomitant]
     Indication: CARDIAC DISORDER
     Dosage: TOTAL DAILY DOSE: 75 MG
  9. WARFARIN SODIUM [Concomitant]
     Indication: CARDIAC DISORDER
  10. LISINOPRIL [Concomitant]
     Indication: CARDIAC DISORDER
  11. HUMALOG [Concomitant]
     Indication: DIABETES MELLITUS
  12. LANTUS [Concomitant]
     Indication: DIABETES MELLITUS
  13. EPOGEN/EPO/PROCRIT [Concomitant]
     Indication: DIALYSIS
     Dosage: ON DIALYSIS DAYS
  14. IRON OR IRON SUPPLEMENTS [Concomitant]
     Indication: DIALYSIS
     Dosage: ON DIALYSIS DAYS
  15. VITAMINS [Concomitant]
  16. BLOOD THINNERS [Concomitant]

REACTIONS (22)
  - ABASIA [None]
  - ANXIETY [None]
  - ARTHRALGIA [None]
  - BACK PAIN [None]
  - BURNING SENSATION [None]
  - CHEST PAIN [None]
  - EMOTIONAL DISTRESS [None]
  - FATIGUE [None]
  - GENERAL PHYSICAL HEALTH DETERIORATION [None]
  - INJURY [None]
  - JOINT SWELLING [None]
  - MOBILITY DECREASED [None]
  - MOTOR DYSFUNCTION [None]
  - MUSCULAR WEAKNESS [None]
  - MUSCULOSKELETAL CHEST PAIN [None]
  - NEPHROGENIC SYSTEMIC FIBROSIS [None]
  - PAIN [None]
  - PAIN IN EXTREMITY [None]
  - PRURITUS [None]
  - RASH GENERALISED [None]
  - SKIN INDURATION [None]
  - SKIN ULCER [None]
